FAERS Safety Report 8762061 (Version 1)
Quarter: 2012Q4

REPORT INFORMATION
  Report Type: 
  Country: US (occurrence: US)
  Receive Date: 20120829
  Receipt Date: 20120829
  Transmission Date: 20130627
  Serious: Yes (Other)
  Sender: FDA-Public Use
  Company Number: US-PFIZER INC-2012211292

PATIENT
  Age: 42 Year
  Sex: Female
  Weight: 63.49 kg

DRUGS (2)
  1. PRISTIQ [Suspect]
     Indication: DEPRESSION
     Dosage: 50 mg, UNK
     Route: 048
  2. PRISTIQ [Suspect]
     Indication: ANXIETY

REACTIONS (1)
  - Coeliac disease [Unknown]
